FAERS Safety Report 8362177-5 (Version None)
Quarter: 2012Q2

REPORT INFORMATION
  Report Type: 
  Country: None (occurrence: None)
  Receive Date: 20120515
  Receipt Date: 20120510
  Transmission Date: 20120825
  Serious: Yes (Other)
  Sender: FDA-Public Use
  Company Number: PHHY2012DE039926

PATIENT
  Age: 50 Year
  Sex: Female

DRUGS (10)
  1. LITHIUM CARBONATE [Concomitant]
     Dosage: 800 MG
  2. VENLAFAXINE [Interacting]
     Dosage: 150 MG, ON DAY 8
  3. VENLAFAXINE [Interacting]
     Dosage: 225 MG ON DAY 16
  4. VENLAFAXINE [Suspect]
     Indication: MAJOR DEPRESSION
     Dosage: 37.5 MG, ON DAY 1
  5. ZOPICLONE [Concomitant]
  6. LORAZEPAM [Concomitant]
     Indication: AGITATION
     Dosage: 3 MG, DAILY
  7. VENLAFAXINE [Interacting]
     Dosage: 75 MG, ON DAY 2
  8. FLUOXETINE [Interacting]
     Indication: MAJOR DEPRESSION
     Dosage: 60 MG, DAILY
  9. BISOPROLOL FUMARATE [Concomitant]
     Indication: ESSENTIAL HYPERTENSION
     Dosage: 2.5 MG, DAILY
  10. LEVOTHYROXINE SODIUM [Concomitant]
     Indication: HYPOTHYROIDISM
     Dosage: 125 UG, DAILY

REACTIONS (7)
  - DRUG INTERACTION [None]
  - AGITATION [None]
  - CONSTIPATION [None]
  - TREMOR [None]
  - FEELING HOT [None]
  - ANTIDEPRESSANT DRUG LEVEL ABOVE THERAPEUTIC [None]
  - SEROTONIN SYNDROME [None]
